FAERS Safety Report 5478247-5 (Version None)
Quarter: 2007Q4

REPORT INFORMATION
  Report Type: 
  Country: None (occurrence: None)
  Receive Date: 20071005
  Receipt Date: 20070925
  Transmission Date: 20080405
  Serious: Yes (Hospitalization, Other)
  Sender: FDA-Public Use
  Company Number: US-ASTRAZENECA-2007UW22022

PATIENT
  Age: 61 Year
  Sex: Female

DRUGS (11)
  1. CRESTOR [Suspect]
     Route: 048
     Dates: start: 20060123
  2. CRESTOR [Suspect]
     Route: 048
     Dates: start: 20060101, end: 20070902
  3. ASPIRIN [Concomitant]
  4. ACIPHEX [Concomitant]
  5. ANTIVERT [Concomitant]
  6. DETROL LA [Concomitant]
  7. IMITREX [Concomitant]
  8. LODINE XL [Concomitant]
  9. LYRICA [Concomitant]
  10. REGLAN [Concomitant]
  11. NAMENDA [Concomitant]

REACTIONS (7)
  - CHEST PAIN [None]
  - DYSPNOEA [None]
  - FIBRIN D DIMER INCREASED [None]
  - HEPATIC ENZYME INCREASED [None]
  - HYPOXIA [None]
  - MYALGIA [None]
  - REFLUX OESOPHAGITIS [None]
